FAERS Safety Report 20038936 (Version 1)
Quarter: 2021Q4

REPORT INFORMATION
  Report Type: Spontaneous
  Country: US (occurrence: US)
  Receive Date: 20211105
  Receipt Date: 20211105
  Transmission Date: 20220303
  Serious: No
  Sender: FDA-Public Use
  Company Number: US-MYLANLABS-2021M1072028

PATIENT
  Sex: Female

DRUGS (11)
  1. TORSEMIDE [Suspect]
     Active Substance: TORSEMIDE
     Indication: Oedema
     Dosage: 100 MILLIGRAM, 1/2 AM + PM
     Route: 048
     Dates: start: 202107
  2. ORENITRAM [Suspect]
     Active Substance: TREPROSTINIL
     Indication: Pulmonary arterial hypertension
     Dosage: UNK
     Dates: start: 20210805
  3. ORENITRAM [Suspect]
     Active Substance: TREPROSTINIL
     Dosage: 1.75 MILLIGRAM, TID
     Route: 048
  4. ORENITRAM [Suspect]
     Active Substance: TREPROSTINIL
     Dosage: 1.25 MILLIGRAM, TID
     Route: 048
  5. ORENITRAM [Suspect]
     Active Substance: TREPROSTINIL
     Dosage: 2 MILLIGRAM, TID
     Route: 048
  6. SPIRONOLACTONE [Suspect]
     Active Substance: SPIRONOLACTONE
     Indication: Oedema
     Dosage: 25 MILLIGRAM, QD
     Route: 048
  7. TADALAFIL [Suspect]
     Active Substance: TADALAFIL
     Indication: Pulmonary arterial hypertension
     Dosage: 20 MILLIGRAM, QD
     Route: 048
  8. DIGOXIN [Suspect]
     Active Substance: DIGOXIN
     Indication: Cardiac failure
     Dosage: 125 MICROGRAM, QD
     Route: 048
  9. AMBRISENTAN [Suspect]
     Active Substance: AMBRISENTAN
     Indication: Pulmonary arterial hypertension
     Dosage: 10 MILLIGRAM, QD
     Route: 048
  10. VITAMINS NOS [Suspect]
     Active Substance: VITAMINS
     Indication: Supplementation therapy
     Dosage: UNK UNK, QD
     Route: 048
  11. APPLE CIDER VINEGAR [Suspect]
     Active Substance: APPLE CIDER VINEGAR
     Indication: Dyspepsia
     Dosage: UNK UNK, PRN

REACTIONS (6)
  - Gastric pH decreased [Not Recovered/Not Resolved]
  - Nasal congestion [Not Recovered/Not Resolved]
  - Productive cough [Unknown]
  - Vomiting [Not Recovered/Not Resolved]
  - Dizziness [Recovering/Resolving]
  - Product dose omission issue [Unknown]

NARRATIVE: CASE EVENT DATE: 20210101
